FAERS Safety Report 20617536 (Version 2)
Quarter: 2022Q1

REPORT INFORMATION
  Report Type: Report from Study
  Country: JP (occurrence: JP)
  Receive Date: 20220321
  Receipt Date: 20220328
  Transmission Date: 20220423
  Serious: Yes (Death, Other)
  Sender: FDA-Public Use
  Company Number: JP-TAKEDA-2022TJP024793

PATIENT
  Age: 44 Year
  Sex: Male
  Weight: 73.5 kg

DRUGS (11)
  1. CABOMETYX [Suspect]
     Active Substance: CABOZANTINIB S-MALATE
     Indication: Renal cell carcinoma stage III
     Dosage: 20 MG, QD
     Route: 048
     Dates: start: 20211028, end: 20211110
  2. CABOMETYX [Suspect]
     Active Substance: CABOZANTINIB S-MALATE
     Dosage: 40 MG, QD
     Route: 048
     Dates: start: 20211111, end: 20211216
  3. LEVOTHYROXINE SODIUM [Concomitant]
     Active Substance: LEVOTHYROXINE SODIUM
     Indication: Renal cell carcinoma stage III
     Dosage: UNK
     Route: 065
     Dates: start: 20211028, end: 20211223
  4. ALLOPURINOL [Concomitant]
     Active Substance: ALLOPURINOL
     Indication: Renal cell carcinoma stage III
     Dosage: UNK
     Route: 065
     Dates: end: 20211223
  5. EPINASTINE HYDROCHLORIDE [Concomitant]
     Active Substance: EPINASTINE HYDROCHLORIDE
     Indication: Renal cell carcinoma stage III
     Dosage: UNK
     Route: 065
     Dates: end: 20211223
  6. BIO-THREE [Concomitant]
     Active Substance: HERBALS
     Indication: Renal cell carcinoma stage III
     Dosage: UNK
     Route: 065
     Dates: end: 20211223
  7. AMITIZA [Concomitant]
     Active Substance: LUBIPROSTONE
     Indication: Renal cell carcinoma stage III
     Dosage: UNK
     Route: 065
  8. LIDOCAINE [Concomitant]
     Active Substance: LIDOCAINE
     Indication: Renal cell carcinoma stage III
     Dosage: UNK
     Route: 065
     Dates: end: 20211215
  9. LIDOCAINE [Concomitant]
     Active Substance: LIDOCAINE
     Indication: Renal cell carcinoma stage III
     Dosage: UNK
     Route: 065
     Dates: start: 20211215, end: 20211223
  10. ACETAMINOPHEN [Concomitant]
     Active Substance: ACETAMINOPHEN
     Indication: Renal cell carcinoma stage III
     Dosage: UNK
     Route: 065
     Dates: end: 20211215
  11. ALBUMIN HUMAN [Concomitant]
     Active Substance: ALBUMIN HUMAN
     Indication: Renal cell carcinoma stage III
     Dosage: UNK
     Route: 065
     Dates: start: 20210930, end: 20211222

REACTIONS (2)
  - Renal cell carcinoma stage III [Fatal]
  - Disease progression [Fatal]

NARRATIVE: CASE EVENT DATE: 20211223
